FAERS Safety Report 21262032 (Version 4)
Quarter: 2022Q4

REPORT INFORMATION
  Report Type: Report from Study
  Country: AU (occurrence: AU)
  Receive Date: 20220827
  Receipt Date: 20221017
  Transmission Date: 20230112
  Serious: Yes (Other)
  Sender: FDA-Public Use
  Company Number: AU-NOVARTISPH-NVSC2022AU185808

PATIENT
  Sex: Female

DRUGS (3)
  1. OFATUMUMAB [Suspect]
     Active Substance: OFATUMUMAB
     Indication: Chronic inflammatory demyelinating polyradiculoneuropathy
     Dosage: 1000 MG
     Route: 065
     Dates: start: 202010
  2. OFATUMUMAB [Suspect]
     Active Substance: OFATUMUMAB
     Dosage: 700 MG, BID ((IN MAY, 700MG X2 , 2 WEEKS)
     Route: 065
  3. RITUXIMAB [Suspect]
     Active Substance: RITUXIMAB
     Indication: Chronic inflammatory demyelinating polyradiculoneuropathy
     Dosage: UNK
     Route: 065

REACTIONS (2)
  - Anaphylactic reaction [Unknown]
  - Product use in unapproved indication [Unknown]
